FAERS Safety Report 18257405 (Version 1)
Quarter: 2020Q3

REPORT INFORMATION
  Report Type: Spontaneous
  Country: CA (occurrence: CA)
  Receive Date: 20200911
  Receipt Date: 20200911
  Transmission Date: 20201103
  Serious: Yes (Other)
  Sender: FDA-Public Use
  Company Number: None

PATIENT
  Age: 50 Year
  Sex: Female
  Weight: 63 kg

DRUGS (1)
  1. XOLAIR [Suspect]
     Active Substance: OMALIZUMAB
     Indication: CHRONIC SPONTANEOUS URTICARIA
     Dosage: ?          QUANTITY:2 INJECTION(S);OTHER FREQUENCY:ONCE Q. 4 WEEKS;OTHER ROUTE:SUBCUTANEOUS INJECTION?

REACTIONS (7)
  - Dizziness [None]
  - Tension headache [None]
  - Vomiting [None]
  - Eye disorder [None]
  - Gait inability [None]
  - Impaired work ability [None]
  - Emotional disorder [None]

NARRATIVE: CASE EVENT DATE: 20200909
